FAERS Safety Report 4666209-7 (Version None)
Quarter: 2005Q2

REPORT INFORMATION
  Report Type: 
  Country: None (occurrence: None)
  Receive Date: 20050518
  Receipt Date: 20050502
  Transmission Date: 20051028
  Serious: Yes (Hospitalization)
  Sender: FDA-Public Use
  Company Number: 8010392

PATIENT
  Age: 27 Year
  Sex: Female

DRUGS (8)
  1. KEPPRA [Suspect]
     Dosage: 2 DF /D PO
     Route: 048
     Dates: start: 20050206, end: 20050211
  2. KEPPRA [Suspect]
     Dosage: 4 DF /D PO
     Route: 048
     Dates: start: 20050212, end: 20050217
  3. KEPPRA [Suspect]
     Dosage: 6 DF /D PO
     Route: 048
     Dates: start: 20050218, end: 20050226
  4. JOSIR [Suspect]
     Dosage: PO
     Route: 048
     Dates: start: 20050217, end: 20050226
  5. XANAX [Concomitant]
  6. LOVENOX [Concomitant]
  7. DEPAKENE [Concomitant]
  8. FUMAFER [Concomitant]

REACTIONS (2)
  - LEUKOPENIA [None]
  - NEUTROPENIA [None]
